FAERS Safety Report 4873120-5 (Version None)
Quarter: 2005Q4

REPORT INFORMATION
  Report Type: 
  Country: None (occurrence: None)
  Receive Date: 20051201
  Receipt Date: 20050817
  Transmission Date: 20060501
  Serious: No
  Sender: FDA-Public Use
  Company Number: 2005PV001256

PATIENT
  Age: 65 Year
  Sex: Male
  Weight: 115.2136 kg

DRUGS (8)
  1. BYETTA [Suspect]
     Indication: DIABETES MELLITUS NON-INSULIN-DEPENDENT
     Dosage: 5 MCG; X1; SC
     Route: 058
     Dates: start: 20050816, end: 20050816
  2. GLUCOTROL [Concomitant]
  3. GLUCOPHAGE [Concomitant]
  4. ZESTRIL [Concomitant]
  5. ZOCOR [Concomitant]
  6. HYDROCHLOROTHIAZIDE [Concomitant]
  7. ASPIRIN [Concomitant]
  8. SYNTHROID [Concomitant]

REACTIONS (12)
  - ARTHRALGIA [None]
  - BODY TEMPERATURE [None]
  - BODY TEMPERATURE INCREASED [None]
  - DEHYDRATION [None]
  - DIZZINESS [None]
  - ELECTROLYTE DEPLETION [None]
  - FALL [None]
  - FEELING JITTERY [None]
  - NAUSEA [None]
  - NECK PAIN [None]
  - PAIN [None]
  - SHOULDER PAIN [None]
